FAERS Safety Report 6534769-7 (Version None)
Quarter: 2010Q1

REPORT INFORMATION
  Report Type: 
  Country: None (occurrence: None)
  Receive Date: 20100112
  Receipt Date: 20100107
  Transmission Date: 20100710
  Serious: Yes (Hospitalization)
  Sender: FDA-Public Use
  Company Number: SE-BRISTOL-MYERS SQUIBB COMPANY-14926216

PATIENT
  Age: 83 Year
  Sex: Male

DRUGS (9)
  1. BIKLIN [Suspect]
  2. TIBINIDE [Suspect]
     Indication: MENINGITIS TUBERCULOUS
     Dosage: TABLETS, DRUG INTERRUPTED AND RESTARTED AT HALF A DOSE
     Dates: start: 20091001
  3. OMEPRAZOLE [Concomitant]
  4. CALCICHEW D3 [Concomitant]
     Dosage: 1 D.F=1000 MG/800 CALCICHEW-D3 CHEWABLE TABLET 1000 MG/800 IE
  5. ALVEDON [Concomitant]
     Dosage: TABLET
  6. PYRIDOXINE [Concomitant]
     Dosage: PYRIDOXIN RECIP TABLET
  7. RIMACTANE [Concomitant]
     Dosage: RIMACTAN COATED TABLET
  8. TROMBYL [Concomitant]
     Dosage: TROMBYL TABLET 75 MG
  9. NOVOMIX [Concomitant]
     Dosage: NOVOMIX 30 FLEXPEN SUSPENSION FOR INJECTION, PRE-FILLED PEN 100 E/ML

REACTIONS (2)
  - HEARING IMPAIRED [None]
  - LACTIC ACIDOSIS [None]
